FAERS Safety Report 12591630 (Version 2)
Quarter: 2016Q3

REPORT INFORMATION
  Report Type: Spontaneous
  Country: FR (occurrence: FR)
  Receive Date: 20160726
  Receipt Date: 20160823
  Transmission Date: 20161109
  Serious: Yes (Hospitalization)
  Sender: FDA-Public Use
  Company Number: FR-ACCORD-042577

PATIENT
  Age: 38 Year
  Sex: Female

DRUGS (6)
  1. FLUOROURACIL PFIZER [Suspect]
     Active Substance: FLUOROURACIL
     Indication: ADENOCARCINOMA GASTRIC
     Dosage: STRENGTH: 50 MG/ML
     Route: 040
     Dates: start: 20160614, end: 20160616
  2. TRINORDIOL [Concomitant]
     Active Substance: ETHINYL ESTRADIOL\LEVONORGESTREL
  3. DUROGESIC [Concomitant]
     Active Substance: FENTANYL
     Dosage: 25 UG/72 H
  4. CISPLATIN ACCORD [Suspect]
     Active Substance: CISPLATIN
     Indication: ADENOCARCINOMA GASTRIC
     Dosage: 1 MG/ML
     Route: 042
     Dates: start: 20160614, end: 20160614
  5. ACTISKENAN [Concomitant]
     Active Substance: MORPHINE SULFATE
     Dosage: 10 MG
  6. CALCIUM LEVOFOLINATE [Concomitant]
     Active Substance: LEVOLEUCOVORIN CALCIUM
     Indication: ADENOCARCINOMA GASTRIC
     Dates: start: 20160614

REACTIONS (4)
  - Pancytopenia [Recovering/Resolving]
  - Mucosal inflammation [Recovering/Resolving]
  - Oesophagitis ulcerative [Recovering/Resolving]
  - Haemorrhage [Unknown]

NARRATIVE: CASE EVENT DATE: 20160623
